FAERS Safety Report 9226946 (Version 1)
Quarter: 2013Q2

REPORT INFORMATION
  Report Type: Spontaneous
  Country: US (occurrence: None)
  Receive Date: 20130410
  Receipt Date: 20130410
  Transmission Date: 20140414
  Serious: Yes (Hospitalization)
  Sender: FDA-Public Use
  Company Number: SYM-2013-02580

PATIENT
  Age: 82 Year
  Sex: Female

DRUGS (4)
  1. XENAZINE [Suspect]
     Indication: DYSKINESIA
     Route: 048
     Dates: start: 20110316
  2. XENAZINE [Suspect]
     Route: 048
     Dates: start: 20110316
  3. INDERAL [Suspect]
  4. RESERPINE [Suspect]
     Indication: PRODUCT USED FOR UNKNOWN INDICATION

REACTIONS (1)
  - Blood pressure decreased [None]
